FAERS Safety Report 14010657 (Version 1)
Quarter: 2017Q3

REPORT INFORMATION
  Report Type: Spontaneous
  Country: US (occurrence: None)
  Receive Date: 20170925
  Receipt Date: 20170925
  Transmission Date: 20171128
  Serious: Yes (Hospitalization)
  Sender: FDA-Public Use
  Company Number: None

PATIENT
  Age: 48 Year
  Sex: Female

DRUGS (1)
  1. BETHKIS [Suspect]
     Active Substance: TOBRAMYCIN
     Indication: ASTHMA
     Route: 055

REACTIONS (3)
  - Therapy cessation [None]
  - Hospitalisation [None]
  - Treatment noncompliance [None]

NARRATIVE: CASE EVENT DATE: 2017
